FAERS Safety Report 6045546-8 (Version None)
Quarter: 2009Q1

REPORT INFORMATION
  Report Type: 
  Country: None (occurrence: None)
  Receive Date: 20090121
  Receipt Date: 20090114
  Transmission Date: 20090719
  Serious: Yes (Hospitalization)
  Sender: FDA-Public Use
  Company Number: B0554762A

PATIENT
  Age: 79 Year
  Sex: Male

DRUGS (8)
  1. AUGMENTIN '125' [Suspect]
     Route: 048
     Dates: start: 20080831, end: 20080904
  2. OMEPRAZOLE [Suspect]
     Indication: DRUG USE FOR UNKNOWN INDICATION
     Route: 048
     Dates: start: 20080831, end: 20080904
  3. NORVASC [Concomitant]
     Route: 048
     Dates: start: 20080901
  4. SERETIDE [Concomitant]
     Indication: COR PULMONALE
     Route: 055
     Dates: start: 20080902
  5. ALBUTEROL SULFATE [Concomitant]
     Indication: COR PULMONALE
     Route: 055
     Dates: start: 20080901, end: 20080910
  6. URBASON [Concomitant]
     Indication: COR PULMONALE
     Route: 042
     Dates: start: 20080902, end: 20080903
  7. DACORTIN [Concomitant]
     Indication: COR PULMONALE
     Route: 048
     Dates: start: 20080904, end: 20080901
  8. IPRATROPIUM BROMIDE [Concomitant]
     Indication: COR PULMONALE
     Route: 055
     Dates: start: 20080901, end: 20080910

REACTIONS (3)
  - BLOOD CREATININE INCREASED [None]
  - RENAL HYPOPLASIA [None]
  - TUBULOINTERSTITIAL NEPHRITIS [None]
